FAERS Safety Report 18955659 (Version 1)
Quarter: 2021Q1

REPORT INFORMATION
  Report Type: Spontaneous
  Country: FR (occurrence: FR)
  Receive Date: 20210301
  Receipt Date: 20210301
  Transmission Date: 20210420
  Serious: Yes (Other)
  Sender: FDA-Public Use
  Company Number: FR-PFIZER INC-2021181102

PATIENT
  Age: 25 Year
  Sex: Male

DRUGS (2)
  1. PREGABALIN. [Suspect]
     Active Substance: PREGABALIN
     Dosage: UNK
     Route: 048
     Dates: start: 20210126, end: 20210126
  2. RIVOTRIL [Suspect]
     Active Substance: CLONAZEPAM
     Dosage: 2 DF
     Route: 048
     Dates: start: 20210126, end: 20210126

REACTIONS (2)
  - Altered state of consciousness [Recovered/Resolved]
  - Drug abuse [Recovered/Resolved]

NARRATIVE: CASE EVENT DATE: 20210126
